FAERS Safety Report 11785470 (Version 1)
Quarter: 2015Q4

REPORT INFORMATION
  Report Type: Spontaneous
  Country: US (occurrence: None)
  Receive Date: 20151125
  Receipt Date: 20151125
  Transmission Date: 20160305
  Serious: No
  Sender: FDA-Public Use
  Company Number: None

PATIENT
  Age: 72 Year
  Sex: Female
  Weight: 59.88 kg

DRUGS (6)
  1. FISH OIL [Concomitant]
     Active Substance: FISH OIL
  2. IRBESARTAN. [Concomitant]
     Active Substance: IRBESARTAN
  3. BENEFIBER [Concomitant]
     Active Substance: STARCH, WHEAT
  4. ALENDRONATE [Suspect]
     Active Substance: ALENDRONATE SODIUM
     Indication: OSTEOPOROSIS
     Dosage: 70 MG OD MOUTH ON EMPTY STOMACH WITH FULL GLASS OF WATER
     Route: 048
     Dates: start: 201407, end: 201502
  5. ASPIRIN. [Concomitant]
     Active Substance: ASPIRIN
  6. LEVOTHYROXINE. [Concomitant]
     Active Substance: LEVOTHYROXINE

REACTIONS (2)
  - Sensitivity of teeth [None]
  - Toothache [None]

NARRATIVE: CASE EVENT DATE: 201502
